FAERS Safety Report 10363961 (Version 2)
Quarter: 2014Q3

REPORT INFORMATION
  Report Type: Spontaneous
  Country: US (occurrence: US)
  Receive Date: 20140805
  Receipt Date: 20140826
  Transmission Date: 20150326
  Serious: Yes (Other)
  Sender: FDA-Public Use
  Company Number: US-GILEAD-2014-0110431

PATIENT
  Sex: Male
  Weight: 112.93 kg

DRUGS (2)
  1. SOVALDI [Suspect]
     Active Substance: SOFOSBUVIR
     Indication: HEPATITIS C
     Dosage: UNK
     Route: 065
  2. RIBAVIRIN. [Concomitant]
     Active Substance: RIBAVIRIN
     Indication: HEPATITIS C
     Dosage: UNK
     Route: 065

REACTIONS (21)
  - Visual brightness [Unknown]
  - Dehydration [Unknown]
  - Pyrexia [Unknown]
  - Exercise tolerance decreased [Unknown]
  - Hypoaesthesia oral [Unknown]
  - Musculoskeletal stiffness [Unknown]
  - Asthenia [Unknown]
  - Heat exhaustion [Unknown]
  - Tongue disorder [Unknown]
  - Diarrhoea [Unknown]
  - Weight decreased [Unknown]
  - Fatigue [Unknown]
  - Tinnitus [Unknown]
  - Pain in extremity [Unknown]
  - Toxicity to various agents [Unknown]
  - Feeling hot [Unknown]
  - Dysphemia [Unknown]
  - Loss of consciousness [Unknown]
  - Hyperhidrosis [Unknown]
  - Headache [Unknown]
  - Muscle spasms [Unknown]
